FAERS Safety Report 8192938-7 (Version None)
Quarter: 2012Q1

REPORT INFORMATION
  Report Type: 
  Country: None (occurrence: None)
  Receive Date: 20120308
  Receipt Date: 20120228
  Transmission Date: 20120608
  Serious: Yes (Hospitalization)
  Sender: FDA-Public Use
  Company Number: JP-BRISTOL-MYERS SQUIBB COMPANY-16422644

PATIENT
  Age: 70 Year
  Sex: Female
  Weight: 48 kg

DRUGS (18)
  1. POSTERISAN FORTE [Concomitant]
     Indication: HAEMORRHOIDS
     Dosage: OINTMENT
     Route: 061
     Dates: start: 20111115
  2. HYALEIN [Concomitant]
     Indication: CONJUNCTIVITIS ALLERGIC
  3. SELBEX [Concomitant]
     Indication: GASTRITIS
     Dosage: CAPS
     Dates: start: 20100727
  4. PANTOSIN [Concomitant]
     Indication: CONSTIPATION
     Dosage: TABS
     Dates: start: 20100813
  5. PURSENNID [Concomitant]
     Indication: CONSTIPATION
     Dosage: TABS
     Dates: start: 20111012
  6. LIVOSTIN [Concomitant]
     Indication: CONJUNCTIVITIS ALLERGIC
  7. ISODINE [Concomitant]
     Indication: INFECTION PROPHYLAXIS
     Dates: start: 20100822
  8. PREDNISONE TAB [Suspect]
     Indication: NON-HODGKIN'S LYMPHOMA
     Route: 048
     Dates: start: 20111019, end: 20111121
  9. RHUBARB + SALICYLIC ACID [Concomitant]
     Indication: CONSTIPATION
     Dates: start: 20111012
  10. RITUXIMAB [Suspect]
     Indication: NON-HODGKIN'S LYMPHOMA
     Route: 042
     Dates: start: 20111019, end: 20111117
  11. VINCRISTINE SULFATE [Suspect]
     Indication: NON-HODGKIN'S LYMPHOMA
     Route: 042
     Dates: start: 20111019, end: 20111117
  12. LANSOPRAZOLE [Concomitant]
     Dates: start: 20100829
  13. CYCLOPHOSPHAMIDE [Suspect]
     Indication: NON-HODGKIN'S LYMPHOMA
     Route: 042
     Dates: start: 20111019, end: 20111117
  14. MAGMITT [Concomitant]
     Indication: CONSTIPATION
     Dosage: TABS
     Dates: start: 20100813
  15. ZOVIRAX [Concomitant]
     Indication: INFECTION PROPHYLAXIS
     Dosage: TABS
     Dates: start: 20111129
  16. OXYCONTIN [Suspect]
     Indication: CANCER PAIN
     Route: 048
     Dates: start: 20111012
  17. LEVOFLOXACIN [Concomitant]
     Indication: INFECTION PROPHYLAXIS
     Dosage: TABS
     Dates: start: 20111129
  18. LENDORMIN [Concomitant]
     Indication: INSOMNIA
     Dosage: TABS
     Dates: start: 20100822

REACTIONS (1)
  - MALLORY-WEISS SYNDROME [None]
